FAERS Safety Report 23357273 (Version 1)
Quarter: 2023Q4

REPORT INFORMATION
  Report Type: Spontaneous
  Country: US (occurrence: None)
  Receive Date: 20231230
  Receipt Date: 20231230
  Transmission Date: 20240110
  Serious: No
  Sender: FDA-Public Use
  Company Number: None

PATIENT
  Age: 46 Year
  Sex: Female
  Weight: 72.9 kg

DRUGS (9)
  1. WEGOVY [Suspect]
     Active Substance: SEMAGLUTIDE
     Indication: Weight decreased
     Dates: start: 20230904
  2. Prozac 40mg [Concomitant]
  3. Prilosec [Concomitant]
  4. Duavee [Concomitant]
  5. ESTROGENS [Concomitant]
     Active Substance: ESTROGENS
  6. VITAMIN D [Concomitant]
     Active Substance: VITAMIN D NOS
  7. VITAMIN B [Concomitant]
     Active Substance: VITAMIN B
  8. MAGNESIUM [Concomitant]
     Active Substance: MAGNESIUM
  9. OMEGA 3 [Concomitant]
     Active Substance: CAPSAICIN

REACTIONS (2)
  - Neuralgia [None]
  - Skin burning sensation [None]

NARRATIVE: CASE EVENT DATE: 20231229
